FAERS Safety Report 5331701-9 (Version None)
Quarter: 2007Q2

REPORT INFORMATION
  Report Type: 
  Country: None (occurrence: None)
  Receive Date: 20070516
  Receipt Date: 20070508
  Transmission Date: 20071010
  Serious: Yes (Other)
  Sender: FDA-Public Use
  Company Number: VEREGEN-2

PATIENT
  Age: 37 Year
  Sex: Female

DRUGS (1)
  1. VEREGEN GREEN TEA EXTRACT (CAMELLIA SINENSIS) [Suspect]
     Indication: WEIGHT CONTROL
     Dosage: 128 MG/CAPSULE ORAL 4 MONTHS IN 2005
     Route: 048

REACTIONS (3)
  - BLOOD ALBUMIN INCREASED [None]
  - HEPATIC NECROSIS [None]
  - HEPATITIS [None]
